FAERS Safety Report 25725637 (Version 1)
Quarter: 2025Q3

REPORT INFORMATION
  Report Type: Spontaneous
  Country: TN (occurrence: TN)
  Receive Date: 20250826
  Receipt Date: 20250826
  Transmission Date: 20251020
  Serious: Yes (Hospitalization)
  Sender: GE HEALTHCARE
  Company Number: TN-GE HEALTHCARE-2025CSU011522

PATIENT
  Sex: Male

DRUGS (2)
  1. VISIPAQUE [Suspect]
     Active Substance: IODIXANOL
     Indication: Scan with contrast
     Route: 065
  2. MANNITOL [Concomitant]
     Active Substance: MANNITOL

REACTIONS (2)
  - Restlessness [Unknown]
  - Urticaria [Unknown]
